FAERS Safety Report 4873317-4 (Version None)
Quarter: 2006Q1

REPORT INFORMATION
  Report Type: 
  Country: None (occurrence: None)
  Receive Date: 20060105
  Receipt Date: 20060103
  Transmission Date: 20060701
  Serious: Yes (Hospitalization)
  Sender: FDA-Public Use
  Company Number: FR-BRISTOL-MYERS SQUIBB COMPANY-13235098

PATIENT
  Age: 59 Year
  Sex: Female

DRUGS (4)
  1. MUCOMYST [Suspect]
     Route: 048
     Dates: end: 20051129
  2. LASILIX [Suspect]
     Route: 048
     Dates: start: 19970126, end: 20051129
  3. DILTIAZEM HCL [Suspect]
     Indication: PULMONARY HYPERTENSION
     Dates: start: 20051107, end: 20051129
  4. TRIFLUCAN [Suspect]
     Route: 048
     Dates: start: 20051107, end: 20051129

REACTIONS (3)
  - DERMATITIS BULLOUS [None]
  - DERMATITIS EXFOLIATIVE [None]
  - OEDEMA [None]
